FAERS Safety Report 9928168 (Version 1)
Quarter: 2014Q1

REPORT INFORMATION
  Report Type: Report from Study
  Country: CA (occurrence: CA)
  Receive Date: 20140227
  Receipt Date: 20140227
  Transmission Date: 20141002
  Serious: Yes (Other)
  Sender: FDA-Public Use
  Company Number: CA-JNJFOC-20140214911

PATIENT
  Age: 51 Year
  Sex: Male
  Weight: 79 kg

DRUGS (4)
  1. REMICADE [Suspect]
     Indication: CROHN^S DISEASE
     Route: 042
     Dates: start: 201306
  2. PREDNISONE [Concomitant]
     Route: 048
  3. LYRICA [Concomitant]
     Route: 065
  4. VOLTAREN [Concomitant]
     Route: 065

REACTIONS (1)
  - Small intestine carcinoma [Not Recovered/Not Resolved]
